FAERS Safety Report 21830129 (Version 1)
Quarter: 2023Q1

REPORT INFORMATION
  Report Type: Report from Study
  Country: US (occurrence: US)
  Receive Date: 20230106
  Receipt Date: 20230106
  Transmission Date: 20230418
  Serious: No
  Sender: FDA-Public Use
  Company Number: US-ABBVIE-4224806

PATIENT
  Age: 69 Year
  Sex: Female

DRUGS (2)
  1. SKYRIZI [Suspect]
     Active Substance: RISANKIZUMAB-RZAA
     Indication: Psoriasis
     Route: 058
  2. SKYRIZI [Suspect]
     Active Substance: RISANKIZUMAB-RZAA
     Indication: Psoriatic arthropathy

REACTIONS (7)
  - Blister [Unknown]
  - Weight decreased [Recovered/Resolved]
  - Pain in extremity [Unknown]
  - Erythema [Not Recovered/Not Resolved]
  - Peripheral swelling [Unknown]
  - Gait disturbance [Unknown]
  - Wheelchair user [Unknown]

NARRATIVE: CASE EVENT DATE: 20220901
